FAERS Safety Report 24661389 (Version 1)
Quarter: 2024Q4

REPORT INFORMATION
  Report Type: Spontaneous
  Country: US (occurrence: None)
  Receive Date: 20241125
  Receipt Date: 20241125
  Transmission Date: 20250114
  Serious: Yes (Other)
  Sender: Public
  Company Number: None

PATIENT
  Age: 67 Year
  Sex: Female
  Weight: 121.5 kg

DRUGS (1)
  1. TRUQAP [Suspect]
     Active Substance: CAPIVASERTIB
     Indication: HER2 negative breast cancer
     Dosage: 400 MG TWICE A DAY ORAL
     Route: 048
     Dates: start: 20241007

REACTIONS (5)
  - Rash [None]
  - Diarrhoea [None]
  - Swelling face [None]
  - Blood glucose increased [None]
  - Dysphagia [None]

NARRATIVE: CASE EVENT DATE: 20241031
